FAERS Safety Report 6300968-2 (Version None)
Quarter: 2009Q3

REPORT INFORMATION
  Report Type: 
  Country: None (occurrence: None)
  Receive Date: 20090806
  Receipt Date: 20090806
  Transmission Date: 20100115
  Serious: No
  Sender: FDA-Public Use
  Company Number: None

PATIENT

DRUGS (4)
  1. SODIUM CHLORIDE [Suspect]
  2. VANCOMYCIN HCL [Suspect]
  3. BAXTER VIAL-MATE ADAPTOR - PRODUCT # 2B8071 [Concomitant]
  4. BAXTER 250ML SODIUM CHLORIDE 0.9% MINIBAG [Concomitant]

REACTIONS (2)
  - CIRCUMSTANCE OR INFORMATION CAPABLE OF LEADING TO MEDICATION ERROR [None]
  - MEDICAL DEVICE COMPLICATION [None]
